FAERS Safety Report 16131853 (Version 1)
Quarter: 2019Q1

REPORT INFORMATION
  Report Type: Spontaneous
  Country: CN (occurrence: CN)
  Receive Date: 20190329
  Receipt Date: 20190329
  Transmission Date: 20190418
  Serious: Yes (Other)
  Sender: FDA-Public Use
  Company Number: CN-BEH-2019100416

PATIENT
  Age: 31 Year
  Sex: Female

DRUGS (5)
  1. THYMOPENTIN [Suspect]
     Active Substance: THYMOPENTIN
     Indication: IMMUNE SYSTEM DISORDER
     Route: 065
  2. ARGININE HYDROCHLORIDE [Suspect]
     Active Substance: ARGININE HYDROCHLORIDE
     Indication: AMMONIA INCREASED
     Route: 065
  3. MEROPENEM. [Suspect]
     Active Substance: MEROPENEM
     Indication: ANTIINFLAMMATORY THERAPY
     Route: 065
  4. TIGECYCLINE. [Suspect]
     Active Substance: TIGECYCLINE
     Indication: ANTIINFLAMMATORY THERAPY
     Route: 065
  5. ALBUMIN HUMAN (INN) [Suspect]
     Active Substance: ALBUMIN HUMAN
     Indication: HYPOPROTEINAEMIA
     Route: 065

REACTIONS (1)
  - Abortion induced [Unknown]
